FAERS Safety Report 9443468 (Version 1)
Quarter: 2013Q3

REPORT INFORMATION
  Report Type: Spontaneous
  Country: US (occurrence: US)
  Receive Date: 20130806
  Receipt Date: 20130806
  Transmission Date: 20140515
  Serious: Yes (Other)
  Sender: FDA-Public Use
  Company Number: PHEH2013US016505

PATIENT
  Sex: Male

DRUGS (2)
  1. EXFORGE [Suspect]
  2. METOPROLOL [Concomitant]

REACTIONS (2)
  - Cerebrovascular accident [Unknown]
  - Hypertension [Unknown]
